FAERS Safety Report 25113339 (Version 2)
Quarter: 2025Q2

REPORT INFORMATION
  Report Type: Spontaneous
  Country: IT (occurrence: IT)
  Receive Date: 20250324
  Receipt Date: 20250401
  Transmission Date: 20250716
  Serious: Yes (Death, Life-Threatening, Other)
  Sender: PFIZER
  Company Number: IT-PFIZER INC-PV202500034278

PATIENT
  Age: 44 Year
  Sex: Female

DRUGS (3)
  1. METHYLPREDNISOLONE [Suspect]
     Active Substance: METHYLPREDNISOLONE
     Indication: Granulomatosis with polyangiitis
  2. GANCICLOVIR [Concomitant]
     Active Substance: GANCICLOVIR
     Indication: Granulomatosis with polyangiitis
  3. RUXOLITINIB [Concomitant]
     Active Substance: RUXOLITINIB
     Indication: Granulomatosis with polyangiitis

REACTIONS (2)
  - Scedosporium infection [Fatal]
  - Off label use [Unknown]
